FAERS Safety Report 4498749-8 (Version None)
Quarter: 2004Q4

REPORT INFORMATION
  Report Type: 
  Country: None (occurrence: None)
  Receive Date: 20041108
  Receipt Date: 20041004
  Transmission Date: 20050328
  Serious: Yes (Other)
  Sender: FDA-Public Use
  Company Number: 20035894-C623363-000

PATIENT
  Age: 43 Year
  Sex: Male
  Weight: 109.3169 kg

DRUGS (1)
  1. SODIUM CHLORIDE 0.9% [Suspect]
     Indication: PLASMAPHERESIS
     Dosage: IV
     Route: 042

REACTIONS (6)
  - BLOOD PRESSURE INCREASED [None]
  - DYSPNOEA [None]
  - FLUSHING [None]
  - LACRIMATION INCREASED [None]
  - PRURITUS [None]
  - RESPIRATORY RATE INCREASED [None]
